FAERS Safety Report 12436716 (Version 1)
Quarter: 2016Q2

REPORT INFORMATION
  Report Type: Spontaneous
  Country: AR (occurrence: AR)
  Receive Date: 20160606
  Receipt Date: 20160606
  Transmission Date: 20160815
  Serious: Yes (Hospitalization, Other)
  Sender: FDA-Public Use
  Company Number: AR-ALKEM-001685

PATIENT
  Age: 63 Year
  Sex: Male

DRUGS (4)
  1. MYCOPHENOLIC ACID. [Suspect]
     Active Substance: MYCOPHENOLIC ACID
     Indication: RENAL TRANSPLANT
  2. MEPREDNISONE [Suspect]
     Active Substance: MEPREDNISONE
     Indication: RENAL TRANSPLANT
  3. TACROLIMUS. [Suspect]
     Active Substance: TACROLIMUS
     Indication: RENAL TRANSPLANT
     Dosage: TROUGH LEVEL: 5-8 NG/ML
  4. BASILIXIMAB [Suspect]
     Active Substance: BASILIXIMAB
     Indication: RENAL TRANSPLANT

REACTIONS (8)
  - Dyskinesia [Recovered/Resolved]
  - Colitis ischaemic [Unknown]
  - Peritonitis bacterial [Recovering/Resolving]
  - Depressed level of consciousness [Recovered/Resolved]
  - Psoriasis [Recovering/Resolving]
  - Intestinal obstruction [Unknown]
  - Confusional state [Recovered/Resolved]
  - Sepsis [Unknown]

NARRATIVE: CASE EVENT DATE: 201402
